FAERS Safety Report 7248538-6 (Version None)
Quarter: 2011Q1

REPORT INFORMATION
  Report Type: 
  Country: None (occurrence: None)
  Receive Date: 20110127
  Receipt Date: 20110115
  Transmission Date: 20110831
  Serious: Yes (Other)
  Sender: FDA-Public Use
  Company Number: CA-BAYER-2011-003938

PATIENT
  Age: 19 Year
  Sex: Female

DRUGS (1)
  1. MAGNEVIST [Suspect]
     Dosage: 10 CC
     Dates: start: 20101230, end: 20101230

REACTIONS (5)
  - NAUSEA [None]
  - CHOKING SENSATION [None]
  - DYSPHONIA [None]
  - RASH MACULAR [None]
  - ABDOMINAL DISCOMFORT [None]
